FAERS Safety Report 6827737-9 (Version None)
Quarter: 2010Q3

REPORT INFORMATION
  Report Type: 
  Country: None (occurrence: None)
  Receive Date: 20100709
  Receipt Date: 20070404
  Transmission Date: 20110219
  Serious: No
  Sender: FDA-Public Use
  Company Number: US-PFIZER INC-2007008306

PATIENT
  Sex: Female
  Weight: 52.16 kg

DRUGS (2)
  1. CHANTIX [Suspect]
     Indication: SMOKING CESSATION THERAPY
     Route: 048
     Dates: start: 20070119
  2. PHENYTOIN [Concomitant]

REACTIONS (9)
  - BLOOD GLUCOSE ABNORMAL [None]
  - CHILLS [None]
  - DECREASED ACTIVITY [None]
  - DECREASED APPETITE [None]
  - FATIGUE [None]
  - INCORRECT DOSE ADMINISTERED [None]
  - NASOPHARYNGITIS [None]
  - NAUSEA [None]
  - THROAT TIGHTNESS [None]
